FAERS Safety Report 9282110 (Version 1)
Quarter: 2013Q2

REPORT INFORMATION
  Report Type: Report from Study
  Country: US (occurrence: US)
  Receive Date: 20130510
  Receipt Date: 20130510
  Transmission Date: 20140414
  Serious: Yes (Other)
  Sender: FDA-Public Use
  Company Number: US-ROCHE-1223137

PATIENT
  Sex: Female

DRUGS (1)
  1. VALCYTE [Suspect]
     Indication: HEART TRANSPLANT
     Route: 065

REACTIONS (1)
  - Cerebrovascular accident [Unknown]
